FAERS Safety Report 4383684-6 (Version None)
Quarter: 2004Q2

REPORT INFORMATION
  Report Type: 
  Country: None (occurrence: None)
  Receive Date: 20040618
  Receipt Date: 20040607
  Transmission Date: 20050107
  Serious: Yes (Disabling)
  Sender: FDA-Public Use
  Company Number: 10055851-NA01-0

PATIENT
  Sex: Female

DRUGS (1)
  1. DOBUTAMINE HCL [Suspect]
     Dates: start: 20020503, end: 20020504

REACTIONS (2)
  - MEDICATION ERROR [None]
  - POLYTRAUMATISM [None]
